FAERS Safety Report 26032178 (Version 2)
Quarter: 2025Q4

REPORT INFORMATION
  Report Type: Report from Study
  Country: CA (occurrence: CA)
  Receive Date: 20251112
  Receipt Date: 20251119
  Transmission Date: 20260118
  Serious: Yes (Hospitalization, Other)
  Sender: ABBVIE
  Company Number: CA-ABBVIE-6536174

PATIENT
  Age: 47 Year
  Sex: Female

DRUGS (1)
  1. SKYRIZI [Suspect]
     Active Substance: RISANKIZUMAB-RZAA
     Indication: Crohn^s disease
     Route: 058
     Dates: end: 2025

REACTIONS (7)
  - Malaise [Unknown]
  - Pain [Unknown]
  - Fistula [Recovered/Resolved]
  - Postoperative wound infection [Unknown]
  - Acute kidney injury [Unknown]
  - Vomiting [Unknown]
  - Renal impairment [Unknown]

NARRATIVE: CASE EVENT DATE: 20250101
